FAERS Safety Report 24813013 (Version 1)
Quarter: 2025Q1

REPORT INFORMATION
  Report Type: Spontaneous
  Country: BR (occurrence: BR)
  Receive Date: 20250107
  Receipt Date: 20250107
  Transmission Date: 20250408
  Serious: Yes (Hospitalization, Other)
  Sender: NOVO NORDISK
  Company Number: BR-NOVOPROD-1343980

PATIENT
  Age: 297 Month
  Sex: Female

DRUGS (1)
  1. WEGOVY [Suspect]
     Active Substance: SEMAGLUTIDE
     Indication: Insulin resistance
     Dosage: 1.7 MG, QW
     Dates: start: 20241118, end: 20241118

REACTIONS (10)
  - Optic neuritis [Unknown]
  - Immunosuppression [Unknown]
  - White blood cell count increased [Unknown]
  - Swelling [Unknown]
  - Mood swings [Unknown]
  - Blood glucose increased [Unknown]
  - Depression [Unknown]
  - Migraine [Not Recovered/Not Resolved]
  - Off label use [Recovered/Resolved]
  - Product use issue [Recovered/Resolved]

NARRATIVE: CASE EVENT DATE: 20241118
